FAERS Safety Report 12464611 (Version 2)
Quarter: 2016Q2

REPORT INFORMATION
  Report Type: Report from Study
  Country: CA (occurrence: KR)
  Receive Date: 20160614
  Receipt Date: 20160624
  Transmission Date: 20160815
  Serious: Yes (Other)
  Sender: FDA-Public Use
  Company Number: US-UCBSA-2016021882

PATIENT

DRUGS (2)
  1. METHYLPHENIDATE. [Suspect]
     Active Substance: METHYLPHENIDATE
     Indication: ATTENTION DEFICIT/HYPERACTIVITY DISORDER
     Dosage: UNKNOWN DOSE
     Route: 048
  2. ATOMOXETINE [Concomitant]
     Active Substance: ATOMOXETINE
     Indication: PRODUCT USED FOR UNKNOWN INDICATION
     Dosage: UNKNOWN DOSE

REACTIONS (5)
  - Cardiac failure [Unknown]
  - Myocardial infarction [Unknown]
  - Hypertension [Unknown]
  - Ischaemic stroke [Unknown]
  - Arrhythmia [Unknown]
